FAERS Safety Report 6544680-3 (Version None)
Quarter: 2010Q1

REPORT INFORMATION
  Report Type: 
  Country: None (occurrence: None)
  Receive Date: 20100121
  Receipt Date: 20100112
  Transmission Date: 20100710
  Serious: Yes (Hospitalization)
  Sender: FDA-Public Use
  Company Number: JP-JNJFOC-20091206129

PATIENT
  Sex: Male
  Weight: 65 kg

DRUGS (12)
  1. REMICADE [Suspect]
     Indication: CROHN'S DISEASE
     Route: 042
  2. REMICADE [Suspect]
     Route: 042
  3. REMICADE [Suspect]
     Route: 042
  4. REMICADE [Suspect]
     Route: 042
  5. REMICADE [Suspect]
     Route: 042
  6. REMICADE [Suspect]
     Route: 042
  7. REMICADE [Suspect]
     Route: 042
  8. PENTASA [Concomitant]
     Indication: CROHN'S DISEASE
     Route: 048
  9. MIYA BM [Concomitant]
     Indication: BOWEL MOVEMENT IRREGULARITY
     Route: 048
  10. FLAGYL [Concomitant]
     Indication: CROHN'S DISEASE
     Route: 048
  11. CIFROQUINON [Concomitant]
     Indication: CROHN'S DISEASE
     Route: 048
  12. POSTERISAN [Concomitant]
     Indication: ANAL FISTULA
     Route: 048

REACTIONS (3)
  - ANAL FISTULA [None]
  - CYTOMEGALOVIRUS INFECTION [None]
  - MENINGITIS [None]
